FAERS Safety Report 5478699-0 (Version None)
Quarter: 2007Q4

REPORT INFORMATION
  Report Type: 
  Country: None (occurrence: None)
  Receive Date: 20071005
  Receipt Date: 20070924
  Transmission Date: 20080405
  Serious: Yes (Other)
  Sender: FDA-Public Use
  Company Number: US-PFIZER INC-2007026837

PATIENT
  Sex: Female
  Weight: 113.9 kg

DRUGS (19)
  1. CHANTIX [Suspect]
     Indication: SMOKING CESSATION THERAPY
     Route: 048
  2. BYETTA [Concomitant]
     Indication: NAUSEA
  3. BYETTA [Concomitant]
     Indication: DIABETES MELLITUS
  4. AVANDIA [Concomitant]
     Indication: DIABETES MELLITUS
  5. GLYBURIDE [Concomitant]
     Indication: DIABETES MELLITUS
  6. ATACAND [Concomitant]
  7. BUMEX [Concomitant]
  8. SYNTHROID [Concomitant]
  9. ULTRAM [Concomitant]
  10. REMERON [Concomitant]
  11. WELLBUTRIN [Concomitant]
  12. HYDROXYZINE [Concomitant]
  13. MIRAPEX [Concomitant]
  14. IBUPROFEN [Concomitant]
  15. SINGULAIR [Concomitant]
  16. ADVAIR DISKUS 100/50 [Concomitant]
     Indication: CHRONIC OBSTRUCTIVE PULMONARY DISEASE
  17. ALPRAZOLAM [Concomitant]
  18. SIMVASTATIN [Concomitant]
  19. ATENOLOL [Concomitant]

REACTIONS (6)
  - BLOOD GLUCOSE DECREASED [None]
  - BLOOD GLUCOSE INCREASED [None]
  - DYSPNOEA [None]
  - INSOMNIA [None]
  - NAUSEA [None]
  - WEIGHT DECREASED [None]
